FAERS Safety Report 21544075 (Version 4)
Quarter: 2023Q1

REPORT INFORMATION
  Report Type: Spontaneous
  Country: HU (occurrence: HU)
  Receive Date: 20221102
  Receipt Date: 20230124
  Transmission Date: 20230418
  Serious: Yes (Hospitalization, Other)
  Sender: FDA-Public Use
  Company Number: HU-BIOGEN-2022BI01164429

PATIENT
  Age: 38 Year
  Sex: Female
  Weight: 63 kg

DRUGS (18)
  1. TECFIDERA [Suspect]
     Active Substance: DIMETHYL FUMARATE
     Indication: Relapsing-remitting multiple sclerosis
     Route: 050
     Dates: start: 20201116, end: 20220906
  2. TECFIDERA [Suspect]
     Active Substance: DIMETHYL FUMARATE
     Route: 050
  3. TECFIDERA [Suspect]
     Active Substance: DIMETHYL FUMARATE
     Dosage: MAINTENANCE DOSE
     Route: 050
     Dates: start: 20201116, end: 20220905
  4. BEVACIZUMAB [Suspect]
     Active Substance: BEVACIZUMAB
     Indication: Squamous cell carcinoma
     Dosage: BETWEEN MARCH AND MAY 2022 - 4 COURSES
     Route: 050
  5. BEVACIZUMAB [Suspect]
     Active Substance: BEVACIZUMAB
     Route: 050
     Dates: start: 20220324, end: 20220526
  6. CISPLATIN [Suspect]
     Active Substance: CISPLATIN
     Indication: Squamous cell carcinoma
     Dosage: BETWEEN MARCH AND MAY 2022 - 4 COURSES
     Route: 050
  7. CISPLATIN [Suspect]
     Active Substance: CISPLATIN
     Route: 050
     Dates: start: 20220324, end: 20220718
  8. PACLITAXEL [Suspect]
     Active Substance: PACLITAXEL
     Indication: Squamous cell carcinoma
     Dosage: BETWEEN MARCH AND MAY 2022 - 4 COURSES
     Route: 050
  9. PACLITAXEL [Suspect]
     Active Substance: PACLITAXEL
     Route: 050
     Dates: start: 20220324, end: 20220526
  10. D3-VITAMIN MEDITOP [Concomitant]
     Indication: Product used for unknown indication
     Dosage: 3000 NE
     Route: 050
  11. D3-VITAMIN MEDITOP [Concomitant]
     Route: 050
     Dates: start: 20201116
  12. SOLU-MEDROL [Concomitant]
     Active Substance: METHYLPREDNISOLONE SODIUM SUCCINATE
     Indication: Product used for unknown indication
     Route: 050
  13. CHLOROPYRAMINE HYDROCHLORIDE [Concomitant]
     Active Substance: CHLOROPYRAMINE HYDROCHLORIDE
     Indication: Product used for unknown indication
     Route: 050
  14. FAMOTIDINE [Concomitant]
     Active Substance: FAMOTIDINE
     Indication: Product used for unknown indication
     Route: 050
  15. ONDANSETRON [Concomitant]
     Active Substance: ONDANSETRON
     Indication: Product used for unknown indication
     Route: 050
  16. SODIUM CHLORIDE [Concomitant]
     Active Substance: SODIUM CHLORIDE
     Indication: Product used for unknown indication
     Route: 050
  17. MAMAZOL [Concomitant]
     Indication: Product used for unknown indication
     Route: 050
  18. algopyrin [Concomitant]
     Indication: Product used for unknown indication
     Route: 050

REACTIONS (2)
  - Squamous cell carcinoma of the cervix [Unknown]
  - Lymphopenia [Not Recovered/Not Resolved]

NARRATIVE: CASE EVENT DATE: 20220101
